FAERS Safety Report 19806424 (Version 1)
Quarter: 2021Q3

REPORT INFORMATION
  Report Type: Spontaneous
  Country: CN (occurrence: CN)
  Receive Date: 20210909
  Receipt Date: 20210909
  Transmission Date: 20211014
  Serious: Yes (Other)
  Sender: FDA-Public Use
  Company Number: CN-BAXTER-2021BAX027866

PATIENT
  Age: 48 Year
  Sex: Female
  Weight: 80 kg

DRUGS (4)
  1. OMEPRAZOLE SODIUM [Suspect]
     Active Substance: OMEPRAZOLE SODIUM
     Indication: CLAVICLE FRACTURE
     Dosage: WITH 0.9% NS
     Route: 041
     Dates: start: 20210818, end: 20210822
  2. MEDIUM AND LONG CHAIN FAT EMULSION INJECTION (C6?24) [Suspect]
     Active Substance: GLYCERIN\LECITHIN\MEDIUM-CHAIN TRIGLYCERIDES\SOYBEAN OIL
     Indication: CLAVICLE FRACTURE
     Route: 041
     Dates: start: 20210818, end: 20210822
  3. 20% MANNITOL INJECTION [Suspect]
     Active Substance: MANNITOL
     Indication: CLAVICLE FRACTURE
     Route: 041
     Dates: start: 20210818, end: 20210822
  4. 0.9% SODIUM CHLORIDE INJECTION [Suspect]
     Active Substance: SODIUM CHLORIDE
     Indication: MEDICATION DILUTION
     Dosage: WITH OMEPRAZOLE SODIUM
     Route: 041
     Dates: start: 20210818, end: 20210822

REACTIONS (3)
  - Papule [Recovering/Resolving]
  - Pruritus [Recovering/Resolving]
  - Dermatitis allergic [Recovering/Resolving]

NARRATIVE: CASE EVENT DATE: 20210820
